FAERS Safety Report 5471536-X (Version None)
Quarter: 2007Q3

REPORT INFORMATION
  Report Type: 
  Country: None (occurrence: None)
  Receive Date: 20070928
  Receipt Date: 20061221
  Transmission Date: 20080115
  Serious: No
  Sender: FDA-Public Use
  Company Number: US-BRISTOL-MYERS SQUIBB COMPANY-13623954

PATIENT
  Age: 57 Year
  Sex: Female
  Weight: 41 kg

DRUGS (1)
  1. DEFINITY [Suspect]
     Indication: ANGINA PECTORIS
     Route: 042
     Dates: start: 20060830

REACTIONS (1)
  - URTICARIA [None]
